FAERS Safety Report 14896932 (Version 2)
Quarter: 2018Q2

REPORT INFORMATION
  Report Type: Report from Study
  Country: MX (occurrence: MX)
  Receive Date: 20180515
  Receipt Date: 20180619
  Transmission Date: 20180711
  Serious: No
  Sender: FDA-Public Use
  Company Number: PHHY2018MX002785

PATIENT
  Age: 52 Year
  Sex: Male

DRUGS (6)
  1. EXFORGE HCT [Suspect]
     Active Substance: AMLODIPINE BESYLATE\HYDROCHLOROTHIAZIDE\VALSARTAN
     Indication: HYPERTENSION
     Dosage: 1 DF (10/320/25 MG), QD
     Route: 048
     Dates: start: 20180421
  2. GALVUS MET [Suspect]
     Active Substance: METFORMIN HYDROCHLORIDE\VILDAGLIPTIN
     Indication: DIABETES MELLITUS
     Dosage: 2 DF (1000MG METFORMIN/50 MG VILDAGLIPTIN), QD
     Route: 048
     Dates: start: 20180421, end: 20180429
  3. VITAMIN B COMPLEX [Concomitant]
     Active Substance: CYANOCOBALAMIN\DEXPANTHENOL\NIACINAMIDE\PYRIDOXINE HYDROCHLORIDE\RIBOFLAVIN 5^-PHOSPHATE SODIUM\THIAMINE HYDROCHLORIDE\VITAMIN B COMPLEX
     Indication: PRODUCT USED FOR UNKNOWN INDICATION
     Dosage: 2 DF, QD
     Route: 065
     Dates: start: 20180422
  4. GALVUS MET [Suspect]
     Active Substance: METFORMIN HYDROCHLORIDE\VILDAGLIPTIN
     Dosage: 2 DF (500 METFORMIN/50 MG VILDAGLIPTIN), QD
     Route: 048
     Dates: start: 20180430
  5. NAXODOL [Concomitant]
     Indication: MUSCLE DISORDER
     Dosage: 2 DF, QD
     Route: 065
     Dates: start: 20180422
  6. DIMENIUM [Concomitant]
     Indication: FEELING OF RELAXATION
     Dosage: 1 DF, QHS
     Route: 065
     Dates: start: 20180422

REACTIONS (3)
  - Vision blurred [Not Recovered/Not Resolved]
  - Dizziness [Not Recovered/Not Resolved]
  - Blood pressure abnormal [Unknown]

NARRATIVE: CASE EVENT DATE: 20180428
